FAERS Safety Report 8132118-4 (Version None)
Quarter: 2012Q1

REPORT INFORMATION
  Report Type: 
  Country: None (occurrence: None)
  Receive Date: 20120213
  Receipt Date: 20120209
  Transmission Date: 20120608
  Serious: No
  Sender: FDA-Public Use
  Company Number: US-PFIZER INC-2012036326

PATIENT
  Sex: Male

DRUGS (2)
  1. GLUCOTROL [Suspect]
     Indication: BLOOD GLUCOSE INCREASED
     Dosage: 2.5 MG, 1X/DAY
     Route: 048
  2. GLUCOTROL XL [Suspect]
     Indication: BLOOD GLUCOSE INCREASED
     Dosage: 2.5 MG, UNK
     Route: 048

REACTIONS (2)
  - BLOOD GLUCOSE DECREASED [None]
  - TREMOR [None]
